FAERS Safety Report 20567625 (Version 8)
Quarter: 2022Q2

REPORT INFORMATION
  Report Type: Spontaneous
  Country: US (occurrence: US)
  Receive Date: 20220308
  Receipt Date: 20220613
  Transmission Date: 20220720
  Serious: Yes (Hospitalization)
  Sender: FDA-Public Use
  Company Number: US-PFIZER INC-202200259278

PATIENT
  Age: 45 Year
  Sex: Female

DRUGS (3)
  1. IBRANCE [Suspect]
     Active Substance: PALBOCICLIB
     Dosage: 125 MG
     Dates: start: 20220209, end: 2022
  2. IBRANCE [Suspect]
     Active Substance: PALBOCICLIB
     Dosage: 100 MG
  3. IBRANCE [Suspect]
     Active Substance: PALBOCICLIB
     Dosage: 100 MG
     Dates: start: 20220322

REACTIONS (15)
  - Dysphagia [Recovering/Resolving]
  - Product dose omission issue [Unknown]
  - Abdominal discomfort [Unknown]
  - Flatulence [Unknown]
  - Abdominal distension [Unknown]
  - Vaginal haemorrhage [Unknown]
  - Full blood count abnormal [Unknown]
  - Gastrointestinal disorder [Unknown]
  - Neuritis [Unknown]
  - Oesophagitis [Unknown]
  - Alopecia [Unknown]
  - White blood cell count decreased [Unknown]
  - Hyperaesthesia teeth [Recovering/Resolving]
  - Limb discomfort [Unknown]
  - Dyspepsia [Unknown]

NARRATIVE: CASE EVENT DATE: 20220101
